FAERS Safety Report 5640575-8 (Version None)
Quarter: 2008Q1

REPORT INFORMATION
  Report Type: 
  Country: None (occurrence: None)
  Receive Date: 20080131
  Receipt Date: 20071107
  Transmission Date: 20080703
  Serious: No
  Sender: FDA-Public Use
  Company Number: 163-21880-07110514

PATIENT
  Age: 62 Year
  Sex: Female
  Weight: 53.0709 kg

DRUGS (13)
  1. REVLIMID [Suspect]
     Indication: MULTIPLE MYELOMA
     Dosage: 25 MG, DAILY FOR 21 DAYS OUT OF 28 DAYS, ORAL
     Route: 048
     Dates: start: 20071013
  2. ALLOPURINOL [Concomitant]
  3. DEXAMETHASONE [Concomitant]
  4. LISINOPRIL [Concomitant]
  5. FELODIPINE [Concomitant]
  6. CLONIDINE [Concomitant]
  7. METOPROLOL TARTRATE [Concomitant]
  8. GLYBURIDE [Concomitant]
  9. METFORMIN HCL [Concomitant]
  10. PRAVASTATIN [Concomitant]
  11. GEMFIBROZIL (FEMFIBROZIL) [Concomitant]
  12. OXYCODONE HCL [Concomitant]
  13. HYDROCHLOROTHIAZIDE [Concomitant]

REACTIONS (3)
  - ABDOMINAL DISCOMFORT [None]
  - PRURITUS [None]
  - RASH [None]
